FAERS Safety Report 8825389 (Version 3)
Quarter: 2013Q1

REPORT INFORMATION
  Report Type: Report from Study
  Country: JP (occurrence: JP)
  Receive Date: 20121004
  Receipt Date: 20130226
  Transmission Date: 20140127
  Serious: Yes (Other)
  Sender: FDA-Public Use
  Company Number: JP-VERTEX PHARMACEUTICAL INC.-AE-2012-010175

PATIENT
  Age: 51 Year
  Sex: Male

DRUGS (10)
  1. VX-950 (TELAPREVIR) [Suspect]
     Indication: CHRONIC HEPATITIS C
     Dosage: 2250 MG, QD
     Route: 048
     Dates: start: 20120410, end: 20120603
  2. VX-950 (TELAPREVIR) [Suspect]
     Dosage: 1500 MG, QD
     Route: 048
     Dates: start: 20120604, end: 20120617
  3. VX-950 (TELAPREVIR) [Suspect]
     Dosage: 1000 MG, QD
     Route: 048
     Dates: start: 20120618, end: 20120702
  4. REBETOL [Suspect]
     Indication: CHRONIC HEPATITIS C
     Dosage: 600 MG, QD
     Route: 048
     Dates: start: 20120410, end: 20120430
  5. REBETOL [Suspect]
     Dosage: 400 MG, QD
     Route: 048
     Dates: start: 20120501, end: 20120506
  6. REBETOL [Suspect]
     Dosage: 200 MG, QD
     Route: 048
     Dates: start: 20120507, end: 20120724
  7. PEGINTRON [Suspect]
     Indication: CHRONIC HEPATITIS C
     Dosage: 1.5 ?G/KG, QW
     Route: 058
     Dates: start: 20120410, end: 20120717
  8. CELESTAMINE [Concomitant]
     Dosage: 1 DF, QD
     Route: 048
     Dates: end: 20120419
  9. TALION [Concomitant]
     Dosage: 20 MG, QD
     Route: 048
     Dates: end: 20120430
  10. URSO [Concomitant]
     Dosage: 600 MG, QD
     Route: 048
     Dates: end: 20120423

REACTIONS (2)
  - Optic neuritis [Recovered/Resolved]
  - Haemoglobin decreased [Not Recovered/Not Resolved]
